FAERS Safety Report 23576055 (Version 1)
Quarter: 2024Q1

REPORT INFORMATION
  Report Type: Spontaneous
  Country: US (occurrence: None)
  Receive Date: 20240227
  Receipt Date: 20240227
  Transmission Date: 20240409
  Serious: Yes (Hospitalization)
  Sender: FDA-Public Use
  Company Number: None

PATIENT
  Age: 68 Year
  Sex: Female
  Weight: 77.4 kg

DRUGS (4)
  1. PEMBROLIZUMAB [Suspect]
     Active Substance: PEMBROLIZUMAB
  2. PACLITAXEL [Suspect]
     Active Substance: PACLITAXEL
  3. IBUPROFEN [Suspect]
     Active Substance: IBUPROFEN
  4. TAMIFLU [Suspect]
     Active Substance: OSELTAMIVIR PHOSPHATE

REACTIONS (5)
  - Headache [None]
  - Tachypnoea [None]
  - Influenza A virus test positive [None]
  - Giant cell arteritis [None]
  - Blood creatinine increased [None]

NARRATIVE: CASE EVENT DATE: 20240225
